FAERS Safety Report 5324068-3 (Version None)
Quarter: 2007Q2

REPORT INFORMATION
  Report Type: 
  Country: None (occurrence: None)
  Receive Date: 20070514
  Receipt Date: 20070503
  Transmission Date: 20071010
  Serious: Yes (Other)
  Sender: FDA-Public Use
  Company Number: FR-ELI_LILLY_AND_COMPANY-FR200702001909

PATIENT
  Age: 68 Year
  Sex: Female

DRUGS (5)
  1. FORTEO [Suspect]
     Indication: OSTEOPOROSIS
     Dosage: 20 UG, DAILY (1/D)
     Route: 058
     Dates: start: 20060529
  2. STABLON [Concomitant]
     Indication: DEPRESSION
     Dosage: 1 D/F, EACH EVENING
  3. LEXOMIL [Concomitant]
     Indication: ANXIETY
     Dosage: 0.5 D/F, 2/D
  4. ACETAMINOPHEN [Concomitant]
     Indication: PAIN
     Dosage: 1 G, EACH MORNING
     Route: 048
  5. EFFERALGAN CODEINE [Concomitant]
     Indication: PAIN
     Dosage: 2 D/F, EACH EVENING

REACTIONS (2)
  - DEPRESSION [None]
  - SUICIDAL IDEATION [None]
